FAERS Safety Report 25459259 (Version 2)
Quarter: 2025Q3

REPORT INFORMATION
  Report Type: Report from Study
  Country: US (occurrence: US)
  Receive Date: 20250620
  Receipt Date: 20250717
  Transmission Date: 20251020
  Serious: Yes (Other)
  Sender: UCB
  Company Number: US-UCBSA-2025036134

PATIENT
  Age: 68 Year
  Sex: Female
  Weight: 67.6 kg

DRUGS (4)
  1. ZILUCOPLAN [Suspect]
     Active Substance: ZILUCOPLAN
     Indication: Myasthenia gravis
     Dosage: 23 MILLIGRAM, ONCE DAILY (QD)
     Route: 058
     Dates: start: 20240625
  2. CRESTOR [Concomitant]
     Active Substance: ROSUVASTATIN CALCIUM
     Indication: Product used for unknown indication
  3. PREDNISONE [Concomitant]
     Active Substance: PREDNISONE
     Indication: Product used for unknown indication
  4. VITAMINS NOS [Concomitant]
     Active Substance: VITAMINS
     Indication: Product used for unknown indication

REACTIONS (2)
  - Myasthenia gravis [Unknown]
  - COVID-19 [Unknown]

NARRATIVE: CASE EVENT DATE: 20250501
